FAERS Safety Report 7551164-2 (Version None)
Quarter: 2011Q2

REPORT INFORMATION
  Report Type: 
  Country: None (occurrence: None)
  Receive Date: 20110616
  Receipt Date: 20110609
  Transmission Date: 20111010
  Serious: Yes (Hospitalization, Other)
  Sender: FDA-Public Use
  Company Number: CA-PFIZER INC-2011063224

PATIENT
  Age: 12 Year
  Sex: Male
  Weight: 23.5 kg

DRUGS (6)
  1. ADVIL LIQUI-GELS [Suspect]
     Indication: JOINT SWELLING
  2. LEVETIRACETAM [Concomitant]
     Dosage: 375 MG, 1X/DAY IN THE MORNING
     Route: 048
     Dates: start: 20090101
  3. LEVETIRACETAM [Concomitant]
     Dosage: 500 MG, 1X/DAY AT NIGHT
     Route: 048
     Dates: start: 20090101
  4. DEPAKENE [Suspect]
     Indication: CONVULSION
     Dosage: 200 MG, 3X/DAY
     Route: 048
     Dates: start: 20021001, end: 20100119
  5. CARBAMAZEPINE [Concomitant]
     Dosage: 200 MG, 2X/DAY
     Route: 048
     Dates: start: 20041001
  6. ADVIL LIQUI-GELS [Suspect]
     Indication: PAIN
     Dosage: UNK
     Route: 048
     Dates: start: 20100103, end: 20100117

REACTIONS (9)
  - OEDEMA [None]
  - PLATELET DISORDER [None]
  - GINGIVAL BLEEDING [None]
  - JOINT EFFUSION [None]
  - ECCHYMOSIS [None]
  - NORMOCHROMIC NORMOCYTIC ANAEMIA [None]
  - PETECHIAE [None]
  - DRUG INTERACTION [None]
  - UPPER RESPIRATORY TRACT INFECTION [None]
